FAERS Safety Report 24298644 (Version 1)
Quarter: 2024Q3

REPORT INFORMATION
  Report Type: Spontaneous
  Country: US (occurrence: US)
  Receive Date: 20240909
  Receipt Date: 20240909
  Transmission Date: 20241016
  Serious: No
  Sender: MILLICENT HOLDINGS
  Company Number: US-Millicent Holdings Ltd.-MILL20241136

PATIENT
  Age: 56 Year
  Sex: Female

DRUGS (2)
  1. FEMRING [Suspect]
     Active Substance: ESTRADIOL ACETATE
     Indication: Menopausal symptoms
     Dosage: 0.10 MG/DAY
     Route: 067
  2. FEMRING [Suspect]
     Active Substance: ESTRADIOL ACETATE
     Dosage: UNKNOWN
     Route: 067

REACTIONS (11)
  - Brain fog [Not Recovered/Not Resolved]
  - Hot flush [Not Recovered/Not Resolved]
  - Aphasia [Not Recovered/Not Resolved]
  - Crying [Not Recovered/Not Resolved]
  - Emotional disorder [Not Recovered/Not Resolved]
  - Formication [Not Recovered/Not Resolved]
  - Night sweats [Not Recovered/Not Resolved]
  - Libido decreased [Not Recovered/Not Resolved]
  - Vulvovaginal dryness [Not Recovered/Not Resolved]
  - Drug ineffective [Not Recovered/Not Resolved]
  - Therapeutic product effect incomplete [Not Recovered/Not Resolved]

NARRATIVE: CASE EVENT DATE: 20240820
